FAERS Safety Report 23713818 (Version 2)
Quarter: 2024Q2

REPORT INFORMATION
  Report Type: Spontaneous
  Country: US (occurrence: US)
  Receive Date: 20240405
  Receipt Date: 20240412
  Transmission Date: 20240716
  Serious: No
  Sender: FDA-Public Use
  Company Number: US-PFIZER INC-202400077757

PATIENT
  Age: 65 Year
  Sex: Male

DRUGS (3)
  1. METOPROLOL TARTRATE [Suspect]
     Active Substance: METOPROLOL TARTRATE
     Dosage: UNK
  2. ELIQUIS [Suspect]
     Active Substance: APIXABAN
     Dosage: UNK
  3. VALSARTAN [Suspect]
     Active Substance: VALSARTAN
     Dosage: UNK

REACTIONS (2)
  - Hot flush [Recovering/Resolving]
  - Nausea [Recovering/Resolving]
